FAERS Safety Report 19731331 (Version 1)
Quarter: 2021Q3

REPORT INFORMATION
  Report Type: Spontaneous
  Country: US (occurrence: US)
  Receive Date: 20210819
  Receipt Date: 20210819
  Transmission Date: 20211014
  Serious: Yes (Hospitalization)
  Sender: FDA-Public Use
  Company Number: None

PATIENT
  Age: 53 Year
  Sex: Male
  Weight: 154.6 kg

DRUGS (3)
  1. IFOSFAMIDE. [Suspect]
     Active Substance: IFOSFAMIDE
     Dates: end: 20200518
  2. CISPLATIN. [Suspect]
     Active Substance: CISPLATIN
     Dates: end: 20200518
  3. TAXOL [Suspect]
     Active Substance: PACLITAXEL
     Dates: end: 20200518

REACTIONS (12)
  - Pyrexia [None]
  - Asthenia [None]
  - Diarrhoea [None]
  - Haemoglobin decreased [None]
  - Vomiting [None]
  - White blood cell count decreased [None]
  - Pain [None]
  - Hypophagia [None]
  - Chest pain [None]
  - Haematuria [None]
  - Dizziness [None]
  - Melaena [None]

NARRATIVE: CASE EVENT DATE: 20200528
